FAERS Safety Report 8182707-6 (Version None)
Quarter: 2012Q1

REPORT INFORMATION
  Report Type: 
  Country: None (occurrence: None)
  Receive Date: 20120305
  Receipt Date: 20120229
  Transmission Date: 20120608
  Serious: Yes (Disabling)
  Sender: FDA-Public Use
  Company Number: US-PFIZER INC-2012054581

PATIENT
  Sex: Male
  Weight: 86.168 kg

DRUGS (3)
  1. VALTREX [Concomitant]
     Dosage: UNK
  2. VIAGRA [Suspect]
     Indication: ERECTILE DYSFUNCTION
     Dosage: 100 MG, AS NEEDED
     Route: 048
  3. PREVACID [Concomitant]
     Dosage: 30 MG, 1X/DAY

REACTIONS (1)
  - DEPRESSION [None]
